FAERS Safety Report 14044525 (Version 1)
Quarter: 2017Q4

REPORT INFORMATION
  Report Type: Spontaneous
  Country: US (occurrence: US)
  Receive Date: 20171005
  Receipt Date: 20171005
  Transmission Date: 20180321
  Serious: Yes (Other)
  Sender: FDA-Public Use
  Company Number: None

PATIENT
  Sex: Female
  Weight: 77.4 kg

DRUGS (15)
  1. ALBUTEROL SULFATE. [Concomitant]
     Active Substance: ALBUTEROL SULFATE
  2. NASAL SPRAY AND NEBULIZER/ FLONASE [Concomitant]
  3. DOXEPIN [Concomitant]
     Active Substance: DOXEPIN
  4. ADVIL [Concomitant]
     Active Substance: IBUPROFEN
  5. SOMINEX [Concomitant]
     Active Substance: DIPHENHYDRAMINE HYDROCHLORIDE
  6. PROBIOTICS [Concomitant]
     Active Substance: PROBIOTICS NOS
  7. BENADRYL [Concomitant]
     Active Substance: DIPHENHYDRAMINE HYDROCHLORIDE
  8. MUCINEX [Concomitant]
     Active Substance: GUAIFENESIN
  9. ALPRAZOLAM ER [Concomitant]
     Active Substance: ALPRAZOLAM
  10. VITAMIN D3 [Concomitant]
     Active Substance: CHOLECALCIFEROL
  11. LIDODERM 5% PAIN PATCH [Concomitant]
  12. SYNTHROID [Concomitant]
     Active Substance: LEVOTHYROXINE SODIUM
  13. BELSOMRA [Suspect]
     Active Substance: SUVOREXANT
     Indication: INSOMNIA
     Dosage: ?          QUANTITY:1 TABLET(S);?
     Route: 048
     Dates: start: 20170815, end: 20170816
  14. VYVANSE [Concomitant]
     Active Substance: LISDEXAMFETAMINE DIMESYLATE
  15. SPIRONOLACTONE. [Concomitant]
     Active Substance: SPIRONOLACTONE

REACTIONS (5)
  - Balance disorder [None]
  - Asthenia [None]
  - Speech disorder [None]
  - Hyperhidrosis [None]
  - Sedation [None]

NARRATIVE: CASE EVENT DATE: 20170815
